FAERS Safety Report 23597612 (Version 1)
Quarter: 2024Q1

REPORT INFORMATION
  Report Type: Spontaneous
  Country: US (occurrence: None)
  Receive Date: 20240305
  Receipt Date: 20240305
  Transmission Date: 20240410
  Serious: Yes (Disabling)
  Sender: FDA-Public Use
  Company Number: None

PATIENT
  Age: 57 Year
  Sex: Female

DRUGS (4)
  1. TAMOXIFEN [Suspect]
     Active Substance: TAMOXIFEN
     Indication: Intraductal proliferative breast lesion
     Dosage: OTHER QUANTITY : 1 TABLET(S);?FREQUENCY : DAILY;?
     Route: 048
     Dates: start: 20240119, end: 20240219
  2. Olmesartanmedox/hctz [Concomitant]
  3. NASONEX [Concomitant]
     Active Substance: MOMETASONE FUROATE
  4. ALLEGRA [Concomitant]
     Active Substance: FEXOFENADINE HYDROCHLORIDE

REACTIONS (6)
  - Nausea [None]
  - Abdominal pain upper [None]
  - Gastrointestinal inflammation [None]
  - Dehydration [None]
  - Muscle spasms [None]
  - Diarrhoea [None]

NARRATIVE: CASE EVENT DATE: 20240219
